FAERS Safety Report 14056692 (Version 8)
Quarter: 2019Q4

REPORT INFORMATION
  Report Type: Spontaneous
  Country: KR (occurrence: KR)
  Receive Date: 20171006
  Receipt Date: 20191121
  Transmission Date: 20200122
  Serious: Yes (Other)
  Sender: FDA-Public Use
  Company Number: KR-009507513-1710KOR001159

PATIENT
  Age: 57 Year
  Sex: Male
  Weight: 63.5 kg

DRUGS (20)
  1. CYTARABINE. [Suspect]
     Active Substance: CYTARABINE
     Indication: ACUTE MYELOID LEUKAEMIA
     Dosage: 3250 MILLIGRAM, QD
     Route: 042
     Dates: start: 20170721, end: 20170725
  2. ZYLORIC [Concomitant]
     Active Substance: ALLOPURINOL
     Indication: PROPHYLAXIS
     Dosage: 100 MILLIGRAM, BID
     Route: 048
     Dates: start: 20170720, end: 20170724
  3. NOXAFIL [Suspect]
     Active Substance: POSACONAZOLE
     Indication: ANTIFUNGAL PROPHYLAXIS
     Dosage: 300 MILLIGRAM, TWICE A DAY
     Route: 048
     Dates: start: 20170724, end: 20170724
  4. SYNTHROID [Concomitant]
     Active Substance: LEVOTHYROXINE SODIUM
     Indication: THYROID CANCER
     Dosage: 0.2 MILLIGRAM, QD
     Route: 048
     Dates: start: 20170721
  5. MAXIPIME [Concomitant]
     Active Substance: CEFEPIME HYDROCHLORIDE
     Indication: INFECTION PROPHYLAXIS
     Dosage: 2 GRAM, BID
     Route: 042
     Dates: start: 20170721, end: 20170722
  6. MEROPENEM. [Concomitant]
     Active Substance: MEROPENEM
     Indication: INFECTION PROPHYLAXIS
     Dosage: 1 GRAM, TID
     Dates: start: 20170722
  7. ALOXI [Concomitant]
     Active Substance: PALONOSETRON HYDROCHLORIDE
     Indication: PROPHYLAXIS OF NAUSEA AND VOMITING
     Dosage: 5 MILLILITER, QD (ONCE DAILY)
     Route: 042
     Dates: start: 20170721, end: 20170721
  8. FLUDARA [Concomitant]
     Active Substance: FLUDARABINE PHOSPHATE
     Indication: ACUTE MYELOID LEUKAEMIA
     Dosage: 50 MILLIGRAM, QD
     Route: 042
     Dates: start: 20170721, end: 20170725
  9. VANCOMYCIN HYDROCHLORIDE. [Concomitant]
     Active Substance: VANCOMYCIN HYDROCHLORIDE
     Indication: INFECTION PROPHYLAXIS
     Dosage: 1 GRAM, BID, 1 G/V
     Route: 042
     Dates: start: 20170722, end: 20170727
  10. NOXAFIL [Suspect]
     Active Substance: POSACONAZOLE
     Dosage: 300 MILLIGRAM, ONCE A DAY
     Route: 048
     Dates: start: 20170725, end: 20170726
  11. VANCOMYCIN HYDROCHLORIDE. [Concomitant]
     Active Substance: VANCOMYCIN HYDROCHLORIDE
     Dosage: 1 GRAM, BID
     Dates: start: 20170807
  12. ERDOS [Concomitant]
     Active Substance: ERDOSTEINE
     Indication: PRODUCTIVE COUGH
     Dosage: 300 MILLIGRAM, TID
     Route: 048
     Dates: start: 20170720
  13. PLAKON [Concomitant]
     Indication: PROPHYLAXIS
     Dosage: 3 MILLIGRAM, QD
     Dates: start: 20170721, end: 20170726
  14. SYNATURA [Concomitant]
     Indication: PRODUCTIVE COUGH
     Dosage: 15 MILLILITER, TID
     Route: 048
     Dates: start: 20170720, end: 20170803
  15. FLUOROMETHOLONE. [Concomitant]
     Active Substance: FLUOROMETHOLONE
     Indication: INFECTION PROPHYLAXIS
     Dosage: 0.1 MILLILITER, PRN
     Route: 047
     Dates: start: 20170721, end: 20170721
  16. MACPERAN [Concomitant]
     Active Substance: METOCLOPRAMIDE HYDROCHLORIDE
     Indication: PROPHYLAXIS
     Dosage: 10 MILLIGRAM, QD
     Route: 042
     Dates: start: 20170721, end: 20170722
  17. TRIDOL (TRAMADOL HYDROCHLORIDE) [Concomitant]
     Indication: PAIN PROPHYLAXIS
     Dosage: 50 MILLIGRAM, QD
     Dates: start: 20170721, end: 20170721
  18. ZAVEL [Concomitant]
     Active Substance: IDARUBICIN HYDROCHLORIDE
     Indication: ACUTE MYELOID LEUKAEMIA
     Dosage: 21 MILLIGRAM, QD
     Route: 042
     Dates: start: 20170721, end: 20170723
  19. ZOYLEX [Concomitant]
     Dosage: 400 MILLIGRAM, BID
     Route: 048
     Dates: start: 20170721
  20. FOLIC ACID. [Concomitant]
     Active Substance: FOLIC ACID
     Indication: PANCYTOPENIA
     Dosage: 1 MILLIGRAM, QD
     Route: 048
     Dates: start: 20170722

REACTIONS (3)
  - Alanine aminotransferase increased [Not Recovered/Not Resolved]
  - Febrile neutropenia [Recovered/Resolved]
  - Hypophosphataemia [Recovered/Resolved]

NARRATIVE: CASE EVENT DATE: 20170725
